FAERS Safety Report 10219989 (Version 1)
Quarter: 2014Q2

REPORT INFORMATION
  Report Type: Spontaneous
  Country: GB (occurrence: GB)
  Receive Date: 20140605
  Receipt Date: 20140605
  Transmission Date: 20141212
  Serious: Yes (Other)
  Sender: FDA-Public Use
  Company Number: PHHY2014GB065969

PATIENT
  Age: 71 Year
  Sex: Female
  Weight: 71.5 kg

DRUGS (17)
  1. ATORVASTATIN [Suspect]
     Dates: start: 20140120
  2. ACCRETE D3 [Concomitant]
     Dates: start: 20140120, end: 20140217
  3. CLOPIDOGREL [Concomitant]
     Dates: start: 20140508
  4. DOCUSATE SODIUM [Concomitant]
     Dates: start: 20140414, end: 20140429
  5. DOXYCYCLINE [Concomitant]
     Dates: start: 20140120
  6. FENBID [Concomitant]
     Dates: start: 20140214, end: 20140408
  7. FLUTICASONE [Concomitant]
     Dates: start: 20130916
  8. GAVISCON ADVANCE [Concomitant]
     Dates: start: 20140214
  9. ISOSORBIDE DINITRATE [Concomitant]
     Dates: start: 20140120
  10. LACRI-LUBE [Concomitant]
     Dates: start: 20140129
  11. NICORANDIL [Concomitant]
     Dates: start: 20140120
  12. PARACETAMOL [Concomitant]
     Dates: start: 20140203
  13. POLYVINYL ALCOHOL [Concomitant]
     Dates: start: 20140214, end: 20140512
  14. SERTRALINE [Concomitant]
     Dates: start: 20140120
  15. SIMVASTATIN [Concomitant]
     Dates: start: 20140513
  16. SLOZEM [Concomitant]
     Dates: start: 20140120
  17. VENTOLIN [Concomitant]
     Dates: start: 20140120

REACTIONS (1)
  - Gynaecomastia [Unknown]
